FAERS Safety Report 6108102-9 (Version None)
Quarter: 2009Q1

REPORT INFORMATION
  Report Type: 
  Country: None (occurrence: None)
  Receive Date: 20090305
  Receipt Date: 20090305
  Transmission Date: 20090719
  Serious: Yes (Death)
  Sender: FDA-Public Use
  Company Number: None

PATIENT
  Age: 44 Year
  Sex: Female
  Weight: 102 kg

DRUGS (13)
  1. CLOZARIL [Suspect]
     Indication: SCHIZOAFFECTIVE DISORDER
     Dosage: 350MG QHS ORAL
     Route: 048
     Dates: start: 20080831
  2. CLOZARIL [Suspect]
     Dates: start: 20080829
  3. RISPERIDONE [Concomitant]
  4. LISINOPRIL [Concomitant]
  5. SIMVASTATIN [Concomitant]
  6. QUINAPRIL [Concomitant]
  7. METFORMIN HCL [Concomitant]
  8. LORAZEPAM [Concomitant]
  9. ZOLPIDEM [Concomitant]
  10. CLONAZEPAM [Concomitant]
  11. QUETIAPINE FUMARATE [Concomitant]
  12. LITHIUM CARBONATE [Concomitant]
  13. VALPROIC ACID [Concomitant]

REACTIONS (2)
  - CARDIO-RESPIRATORY ARREST [None]
  - UNRESPONSIVE TO STIMULI [None]
